FAERS Safety Report 9470783 (Version 1)
Quarter: 2013Q3

REPORT INFORMATION
  Report Type: Spontaneous
  Country: FR (occurrence: FR)
  Receive Date: 20130822
  Receipt Date: 20130822
  Transmission Date: 20140515
  Serious: Yes (Death, Other)
  Sender: FDA-Public Use
  Company Number: FR-ROCHE-1261826

PATIENT
  Age: 37 Year
  Sex: Male

DRUGS (6)
  1. BEVACIZUMAB [Suspect]
     Indication: BLADDER CANCER
     Route: 065
  2. CAPECITABINE [Suspect]
     Indication: BLADDER CANCER
     Route: 065
  3. 5-FLUOROURACIL [Suspect]
     Indication: BLADDER CANCER
     Route: 040
  4. 5-FLUOROURACIL [Suspect]
     Dosage: 1200 MG AS I.V. CONTINUOUS INJECTION OVER 46 H,
     Route: 042
  5. IRINOTECAN [Suspect]
     Indication: BLADDER CANCER
     Route: 065
  6. OXALIPLATIN [Suspect]
     Indication: BLADDER CANCER
     Route: 065

REACTIONS (3)
  - Shock haemorrhagic [Fatal]
  - Nausea [Unknown]
  - Vomiting [Unknown]
